FAERS Safety Report 8928726 (Version 1)
Quarter: 2012Q4

REPORT INFORMATION
  Report Type: 
  Country: US (occurrence: US)
  Receive Date: 20121128
  Receipt Date: 20121128
  Transmission Date: 20130627
  Serious: Yes (Other)
  Sender: FDA-Public Use
  Company Number: US-PFIZER INC-2012294086

PATIENT
  Age: 29 Year
  Sex: Male

DRUGS (8)
  1. IBUPROFEN [Suspect]
     Indication: HEADACHE
     Dosage: UNK
     Route: 065
     Dates: end: 201204
  2. IBUPROFEN [Suspect]
     Indication: PREMEDICATION
  3. TYLENOL [Suspect]
     Indication: HEADACHE
     Dosage: UNK
     Route: 065
     Dates: end: 201204
  4. TYLENOL [Suspect]
     Indication: PREMEDICATION
  5. REBIF [Suspect]
     Indication: MULTIPLE SCLEROSIS
     Dosage: 3 times per week
     Route: 058
     Dates: start: 20110311
  6. REBIF [Suspect]
     Dosage: 22 ug, UNK
     Route: 058
     Dates: start: 201204
  7. ALEVE [Suspect]
     Indication: HEADACHE
     Route: 065
     Dates: end: 201204
  8. ALEVE [Suspect]
     Indication: PREMEDICATION

REACTIONS (11)
  - Liver function test abnormal [Recovered/Resolved]
  - Malaise [Unknown]
  - Headache [Unknown]
  - Feeling abnormal [Unknown]
  - Multiple sclerosis [Unknown]
  - Gait disturbance [Unknown]
  - Balance disorder [Unknown]
  - Asthenia [Unknown]
  - Pain in extremity [Unknown]
  - Memory impairment [Unknown]
  - Injection site erythema [Unknown]
